FAERS Safety Report 11651728 (Version 1)
Quarter: 2015Q4

REPORT INFORMATION
  Report Type: Spontaneous
  Country: US (occurrence: None)
  Receive Date: 20151021
  Receipt Date: 20151021
  Transmission Date: 20160304
  Serious: Yes (Other)
  Sender: FDA-Public Use
  Company Number: None

PATIENT
  Age: 40 Year
  Sex: Female
  Weight: 65.77 kg

DRUGS (3)
  1. ZYRTEC [Concomitant]
     Active Substance: CETIRIZINE HYDROCHLORIDE
  2. TRANSDERM SCOP [Suspect]
     Active Substance: SCOPOLAMINE
     Indication: PROPHYLAXIS AGAINST MOTION SICKNESS
     Dosage: 72 HOURS?APPLIED AS MEDICATED PATCH TO SKIN
     Route: 061
     Dates: start: 20151010, end: 20151017
  3. CARDIZEM LA [Concomitant]
     Active Substance: DILTIAZEM HYDROCHLORIDE

REACTIONS (6)
  - Pharyngeal oedema [None]
  - Oropharyngeal pain [None]
  - Pharyngitis [None]
  - Dizziness [None]
  - Dry mouth [None]
  - Drug withdrawal syndrome [None]

NARRATIVE: CASE EVENT DATE: 20151020
